FAERS Safety Report 8828015 (Version 2)
Quarter: 2012Q4

REPORT INFORMATION
  Report Type: 
  Country: CH (occurrence: CH)
  Receive Date: 20121005
  Receipt Date: 20121206
  Transmission Date: 20130627
  Serious: Yes (Other)
  Sender: FDA-Public Use
  Company Number: CH-BAYER-2012-099700

PATIENT
  Sex: Male

DRUGS (1)
  1. NEXAVAR [Suspect]

REACTIONS (1)
  - Panniculitis [Recovering/Resolving]
